FAERS Safety Report 4550110-3 (Version None)
Quarter: 2005Q1

REPORT INFORMATION
  Report Type: 
  Country: None (occurrence: None)
  Receive Date: 20050107
  Receipt Date: 20041223
  Transmission Date: 20050727
  Serious: Yes (Hospitalization)
  Sender: FDA-Public Use
  Company Number: 140975USA

PATIENT
  Age: 54 Year
  Sex: Female
  Weight: 68.0396 kg

DRUGS (7)
  1. FLUOROURACIL [Suspect]
     Indication: COLON CANCER
     Dosage: 1000 MILLIGRAM INTRAVENOUS (NOS)
     Route: 042
     Dates: start: 20040922, end: 20041206
  2. ELOXATIN [Concomitant]
  3. LEUCOVORIN [Concomitant]
  4. AVASTIN [Concomitant]
  5. KYTRIL [Concomitant]
  6. DECADRON [Concomitant]
  7. ALOXI [Concomitant]

REACTIONS (7)
  - ABDOMINAL PAIN [None]
  - ANASTOMOTIC ULCER [None]
  - DIARRHOEA [None]
  - GASTROINTESTINAL NECROSIS [None]
  - GASTROINTESTINAL TOXICITY [None]
  - INTESTINAL PERFORATION [None]
  - POST PROCEDURAL COMPLICATION [None]
